FAERS Safety Report 7498603-3 (Version None)
Quarter: 2011Q2

REPORT INFORMATION
  Report Type: 
  Country: None (occurrence: None)
  Receive Date: 20110524
  Receipt Date: 20110429
  Transmission Date: 20111010
  Serious: Yes (Hospitalization, Other)
  Sender: FDA-Public Use
  Company Number: BR-BAYER-200912528LA

PATIENT
  Age: 33 Year
  Sex: Female

DRUGS (5)
  1. DACTIL OB [Concomitant]
     Route: 048
  2. INHIBIN [HYDROQUININE HYDROBROMIDE] [Concomitant]
     Dosage: TOOK 1 PACKAGE
     Route: 065
  3. MIRENA [Suspect]
     Indication: CONTRACEPTION
     Dosage: FREQUENCY: CONTINUOUS
     Route: 015
     Dates: start: 20080704, end: 20100201
  4. BRONDILAT [AMBROXOL ACEFYLLINATE] [Concomitant]
     Indication: UTERINE ATONY
     Route: 065
     Dates: start: 20090227, end: 20090301
  5. ISOXSUPRINE HCL [Concomitant]
     Dosage: TOOK 1 PACKAGE
     Route: 065

REACTIONS (12)
  - DEVICE DISLOCATION [None]
  - ABDOMINAL DISTENSION [None]
  - ABDOMINAL PAIN [None]
  - IMMINENT ABORTION [None]
  - AMENORRHOEA [None]
  - RETROPLACENTAL HAEMATOMA [None]
  - VAGINAL HAEMORRHAGE [None]
  - HIGH RISK PREGNANCY [None]
  - MENSTRUATION DELAYED [None]
  - POST PROCEDURAL HAEMORRHAGE [None]
  - PELVIC PAIN [None]
  - PREMATURE SEPARATION OF PLACENTA [None]
